FAERS Safety Report 8171486-4 (Version None)
Quarter: 2012Q1

REPORT INFORMATION
  Report Type: 
  Country: None (occurrence: None)
  Receive Date: 20120228
  Receipt Date: 20120222
  Transmission Date: 20120608
  Serious: Yes (Life-Threatening)
  Sender: FDA-Public Use
  Company Number: IT-PFIZER INC-2011282523

PATIENT
  Age: 8 Year
  Sex: Male

DRUGS (1)
  1. BENEFIX [Suspect]
     Indication: FACTOR IX DEFICIENCY
     Dosage: 1000 IU
     Route: 042
     Dates: start: 20111010, end: 20111014

REACTIONS (2)
  - RESPIRATORY ARREST [None]
  - CYANOSIS [None]
